FAERS Safety Report 20696299 (Version 1)
Quarter: 2022Q2

REPORT INFORMATION
  Report Type: Spontaneous
  Country: US (occurrence: US)
  Receive Date: 20220411
  Receipt Date: 20220411
  Transmission Date: 20220721
  Serious: No
  Sender: FDA-Public Use
  Company Number: US-PFIZER INC-202101297690

PATIENT
  Age: 76 Year
  Sex: Female

DRUGS (2)
  1. IBRANCE [Suspect]
     Active Substance: PALBOCICLIB
     Dosage: 100 MG
     Dates: start: 20210813
  2. FEMARA [Concomitant]
     Active Substance: LETROZOLE

REACTIONS (6)
  - Bone pain [Recovered/Resolved]
  - Fatigue [Recovered/Resolved]
  - Cough [Recovered/Resolved]
  - Peripheral sensory neuropathy [Recovered/Resolved]
  - Spinal pain [Recovered/Resolved]
  - Musculoskeletal chest pain [Recovered/Resolved]
